FAERS Safety Report 8428971-7 (Version None)
Quarter: 2012Q2

REPORT INFORMATION
  Report Type: 
  Country: None (occurrence: None)
  Receive Date: 20120612
  Receipt Date: 20120531
  Transmission Date: 20120825
  Serious: Yes (Hospitalization)
  Sender: FDA-Public Use
  Company Number: CA-JNJFOC-20120600760

PATIENT
  Sex: Male

DRUGS (12)
  1. ATORVASTATIN CALCIUM [Concomitant]
     Route: 065
  2. LIPITOR [Concomitant]
     Route: 065
  3. NOVORAPID [Concomitant]
     Route: 065
  4. REMICADE [Suspect]
     Indication: CROHN'S DISEASE
     Dosage: 400 MG INDUCTION WEEK 0-2 RECEIVED
     Route: 042
     Dates: start: 20120420
  5. FERROUS SULFATE TAB [Concomitant]
     Route: 065
  6. METFORMIN HCL [Concomitant]
     Route: 065
  7. TEVA-GLYBURIDE [Concomitant]
     Route: 065
  8. AVAPRO [Concomitant]
     Route: 065
  9. NOVOLIN NOS [Concomitant]
     Route: 065
  10. MESALAMINE [Concomitant]
     Route: 065
  11. PANTOPRAZOLE SODIUM [Concomitant]
     Route: 065
  12. REMICADE [Suspect]
     Route: 042
     Dates: start: 20120531

REACTIONS (1)
  - GASTROENTERITIS [None]
